FAERS Safety Report 6540438-X (Version None)
Quarter: 2010Q1

REPORT INFORMATION
  Report Type: 
  Country: None (occurrence: None)
  Receive Date: 20100113
  Receipt Date: 20100104
  Transmission Date: 20100710
  Serious: Yes (Hospitalization)
  Sender: FDA-Public Use
  Company Number: 2009029731

PATIENT
  Age: 75 Year
  Sex: Female

DRUGS (8)
  1. TREANDA [Suspect]
     Indication: B-CELL LYMPHOMA
     Dosage: 180 MG/M2 (90 MG/M2, 2 IN 1 CYCLICAL), INTRAVENOUS
     Route: 042
     Dates: start: 20090901
  2. RITUXIMAB (RITUXIMAB) [Concomitant]
  3. BENICAR [Concomitant]
  4. EVISTA [Concomitant]
  5. FLEXERIL [Concomitant]
  6. NEXIUM [Concomitant]
  7. LEXAPRO [Concomitant]
  8. XANAX [Concomitant]

REACTIONS (7)
  - CHILLS [None]
  - INFECTION [None]
  - NEUTROPHIL COUNT DECREASED [None]
  - PYREXIA [None]
  - RASH GENERALISED [None]
  - TREMOR [None]
  - WHITE BLOOD CELL COUNT DECREASED [None]
